FAERS Safety Report 4763598-X (Version None)
Quarter: 2005Q3

REPORT INFORMATION
  Report Type: 
  Country: None (occurrence: None)
  Receive Date: 20050901
  Receipt Date: 20050722
  Transmission Date: 20060218
  Serious: No
  Sender: FDA-Public Use
  Company Number: 200511476BWH

PATIENT
  Age: 77 Year
  Sex: Male

DRUGS (6)
  1. LEVITRA [Suspect]
     Indication: ERECTILE DYSFUNCTION
     Dosage: 10MG TOTAL DAILY ORAL
     Route: 048
     Dates: start: 20050713
  2. ATENOLOL [Concomitant]
  3. NORVASC [Concomitant]
  4. LASIX [Concomitant]
  5. LIPITOR [Concomitant]
  6. FLOMAX [Concomitant]

REACTIONS (1)
  - ERECTILE DYSFUNCTION [None]
